FAERS Safety Report 4837361-5 (Version None)
Quarter: 2005Q4

REPORT INFORMATION
  Report Type: 
  Country: None (occurrence: None)
  Receive Date: 20051122
  Receipt Date: 20051109
  Transmission Date: 20060501
  Serious: Yes (Hospitalization, Disabling)
  Sender: FDA-Public Use
  Company Number: 2005150380

PATIENT
  Age: 42 Year
  Sex: Male

DRUGS (5)
  1. LYRICA [Suspect]
     Indication: EPILEPSY
     Dosage: 150 MG (75 MG, 2 IN 1 D), ORAL
     Route: 048
     Dates: start: 20050724, end: 20050815
  2. CLOBAZAM (CLOBAZAM) [Concomitant]
  3. LAMOTRIGINE [Concomitant]
  4. TOPIRAMATE [Concomitant]
  5. PRIMIDONE [Concomitant]

REACTIONS (4)
  - ABDOMINAL DISTENSION [None]
  - CONSTIPATION [None]
  - DIZZINESS [None]
  - SOMNOLENCE [None]
